FAERS Safety Report 5984010-9 (Version None)
Quarter: 2008Q4

REPORT INFORMATION
  Report Type: 
  Country: None (occurrence: None)
  Receive Date: 20081208
  Receipt Date: 20081203
  Transmission Date: 20090506
  Serious: Yes (Other)
  Sender: FDA-Public Use
  Company Number: US-JNJCH-2008056352

PATIENT
  Age: 77 Year
  Sex: Female
  Weight: 65.8 kg

DRUGS (2)
  1. BENGAY ULTRA STRENGTH PATCH [Suspect]
     Indication: PAIN
     Dosage: TEXT:1 PATCH ONCE
     Route: 061
     Dates: start: 20081201, end: 20081202
  2. VYTORIN [Concomitant]
     Indication: BLOOD CHOLESTEROL INCREASED
     Dosage: TEXT:1 CAPSULE DAILY
     Route: 048

REACTIONS (3)
  - APPLICATION SITE EROSION [None]
  - INSOMNIA [None]
  - PAIN [None]
